FAERS Safety Report 8173749-5 (Version None)
Quarter: 2012Q1

REPORT INFORMATION
  Report Type: 
  Country: None (occurrence: None)
  Receive Date: 20120229
  Receipt Date: 20110805
  Transmission Date: 20120608
  Serious: No
  Sender: FDA-Public Use
  Company Number: US-ABBOTT-11P-163-0844617-00

PATIENT
  Sex: Female
  Weight: 54.48 kg

DRUGS (1)
  1. DEPAKENE [Suspect]
     Indication: CONVULSION
     Route: 048
     Dates: start: 19910101

REACTIONS (4)
  - ABDOMINAL PAIN UPPER [None]
  - INAPPROPRIATE SCHEDULE OF DRUG ADMINISTRATION [None]
  - MEDICATION ERROR [None]
  - ANTICONVULSANT DRUG LEVEL DECREASED [None]
